FAERS Safety Report 16884334 (Version 2)
Quarter: 2019Q4

REPORT INFORMATION
  Report Type: Spontaneous
  Country: US (occurrence: US)
  Receive Date: 20191004
  Receipt Date: 20191015
  Transmission Date: 20200122
  Serious: No
  Sender: FDA-Public Use
  Company Number: US-JNJFOC-20191003224

PATIENT
  Age: 82 Year
  Sex: Female
  Weight: 73.55 kg

DRUGS (1)
  1. REMICADE [Suspect]
     Active Substance: INFLIXIMAB
     Indication: RHEUMATOID ARTHRITIS
     Route: 042
     Dates: start: 20190227

REACTIONS (2)
  - Underdose [Not Recovered/Not Resolved]
  - Intercepted product dispensing error [Unknown]

NARRATIVE: CASE EVENT DATE: 20191001
